FAERS Safety Report 26122051 (Version 1)
Quarter: 2025Q4

REPORT INFORMATION
  Report Type: Spontaneous
  Country: EU (occurrence: EU)
  Receive Date: 20251204
  Receipt Date: 20251204
  Transmission Date: 20260117
  Serious: Yes (Other)
  Sender: MYLAN
  Company Number: None

PATIENT
  Age: 60 Year
  Sex: Female
  Weight: 82 kg

DRUGS (2)
  1. SUNITINIB [Suspect]
     Active Substance: SUNITINIB
     Indication: Renal cancer
     Dosage: 50 MILLIGRAM, CYCLE, ONGOING THERAPY; 4-WEEK CYCLES OF TAKING THE DRUG
     Dates: start: 20210202
  2. ENOXAPARIN SODIUM [Concomitant]
     Active Substance: ENOXAPARIN SODIUM
     Dosage: 40 MILLIGRAM, (EVERY 12 HOURS) BID, 40 MG/0.4 ML; ONGOING THERAPY

REACTIONS (8)
  - Disturbance in attention [Unknown]
  - Skin abrasion [Unknown]
  - Initial insomnia [Unknown]
  - Cough [Unknown]
  - Haemoptysis [Unknown]
  - Asthenia [Unknown]
  - Fatigue [Unknown]
  - Constipation [Unknown]

NARRATIVE: CASE EVENT DATE: 20210802
